FAERS Safety Report 4918524-7 (Version None)
Quarter: 2006Q1

REPORT INFORMATION
  Report Type: 
  Country: None (occurrence: None)
  Receive Date: 20060221
  Receipt Date: 20060221
  Transmission Date: 20060701
  Serious: Yes (Death, Life-Threatening, Hospitalization)
  Sender: FDA-Public Use
  Company Number: None

PATIENT
  Age: 6 Year
  Sex: Male
  Weight: 13 kg

DRUGS (3)
  1. ASPIRIN [Suspect]
     Indication: GASTRIC HAEMORRHAGE
     Dosage: 25 MG QD PO
     Route: 048
     Dates: start: 20030101, end: 20051205
  2. ASPIRIN [Suspect]
     Indication: GASTRITIS EROSIVE
     Dosage: 25 MG QD PO
     Route: 048
     Dates: start: 20030101, end: 20051205
  3. ASPIRIN [Suspect]
     Indication: PULMONARY HAEMORRHAGE
     Dosage: 25 MG QD PO
     Route: 048
     Dates: start: 20030101, end: 20051205

REACTIONS (8)
  - EPISTAXIS [None]
  - GASTROINTESTINAL HAEMORRHAGE [None]
  - GENERAL PHYSICAL HEALTH DETERIORATION [None]
  - HAEMATEMESIS [None]
  - HAEMODYNAMIC INSTABILITY [None]
  - INFLAMMATION [None]
  - MELAENA [None]
  - PULMONARY HAEMORRHAGE [None]
